FAERS Safety Report 8777355 (Version 1)
Quarter: 2012Q4

REPORT INFORMATION
  Report Type: 
  Country: US (occurrence: US)
  Receive Date: 20120911
  Receipt Date: 20120911
  Transmission Date: 20130627
  Serious: No
  Sender: FDA-Public Use
  Company Number: US-PFIZER INC-2012219375

PATIENT
  Sex: Female

DRUGS (3)
  1. CLINDAMYCIN HCL [Suspect]
     Indication: TOOTH INFECTION
     Dosage: 300 mg, 4x/day
     Route: 048
     Dates: start: 20120808, end: 20120818
  2. FISH OIL [Concomitant]
     Dosage: UNK, 1x/day
     Route: 048
  3. MULTIVITAMINS [Concomitant]
     Dosage: UNK, 1x/day
     Route: 048

REACTIONS (6)
  - Dizziness [Unknown]
  - Nausea [Unknown]
  - Headache [Unknown]
  - Disturbance in attention [Unknown]
  - Dyspepsia [Unknown]
  - Diarrhoea [Unknown]
